FAERS Safety Report 6862693-9 (Version None)
Quarter: 2010Q3

REPORT INFORMATION
  Report Type: 
  Country: None (occurrence: None)
  Receive Date: 20100721
  Receipt Date: 20100709
  Transmission Date: 20110219
  Serious: Yes (Other)
  Sender: FDA-Public Use
  Company Number: US-ROCHE-672605

PATIENT
  Sex: Male
  Weight: 72.6 kg

DRUGS (3)
  1. ACCUTANE [Suspect]
     Route: 065
     Dates: start: 20001121, end: 20010208
  2. ACCUTANE [Suspect]
     Route: 065
     Dates: start: 20010920
  3. ACCUTANE [Suspect]
     Dosage: DOSE DECREASED
     Route: 065
     Dates: start: 20011101, end: 20011219

REACTIONS (8)
  - CHEILITIS [None]
  - CROHN'S DISEASE [None]
  - DEPRESSION [None]
  - INFLAMMATORY BOWEL DISEASE [None]
  - IRRITABLE BOWEL SYNDROME [None]
  - LIP DRY [None]
  - OCULAR HYPERAEMIA [None]
  - XEROSIS [None]
